FAERS Safety Report 10075453 (Version 1)
Quarter: 2014Q2

REPORT INFORMATION
  Report Type: Spontaneous
  Country: US (occurrence: US)
  Receive Date: 20140414
  Receipt Date: 20140414
  Transmission Date: 20141212
  Serious: Yes (Other)
  Sender: FDA-Public Use
  Company Number: US-ACCORD-023050

PATIENT
  Age: 55 Year
  Sex: Male

DRUGS (2)
  1. ANDROGEL [Suspect]
     Indication: SEXUAL DYSFUNCTION
  2. ANASTROZOLE [Suspect]
     Indication: BLOOD OESTROGEN INCREASED

REACTIONS (2)
  - Off label use [Unknown]
  - Osteonecrosis of jaw [Recovered/Resolved]
